FAERS Safety Report 25750190 (Version 1)
Quarter: 2025Q3

REPORT INFORMATION
  Report Type: Spontaneous
  Country: EU (occurrence: EU)
  Receive Date: 20250902
  Receipt Date: 20250902
  Transmission Date: 20251021
  Serious: Yes (Other)
  Sender: AUROBINDO
  Company Number: EU-UCBSA-2025048646

PATIENT
  Age: 35 Year
  Sex: Female

DRUGS (8)
  1. LEVETIRACETAM [Suspect]
     Active Substance: LEVETIRACETAM
     Indication: Temporal lobe epilepsy
     Dosage: 2000 MILLIGRAM, ONCE A DAY (1000 MILLIGRAM, 2X/DAY (BID))
     Route: 065
     Dates: end: 20220314
  2. TOPIRAMATE [Suspect]
     Active Substance: TOPIRAMATE
     Indication: Temporal lobe epilepsy
     Dosage: 100 MILLIGRAM, ONCE A DAY (50 MILLIGRAM, 2X/DAY (BID))
     Route: 065
  3. TOPIRAMATE [Suspect]
     Active Substance: TOPIRAMATE
     Dosage: 200 MILLIGRAM, ONCE A DAY (100 MILLIGRAM, 2X/DAY (BID))
     Route: 065
  4. ESLICARBAZEPINE ACETATE [Suspect]
     Active Substance: ESLICARBAZEPINE ACETATE
     Indication: Temporal lobe epilepsy
     Dosage: 1600 MILLIGRAM, ONCE DAILY (QD)
     Route: 065
  5. VALPROIC ACID [Concomitant]
     Active Substance: VALPROIC ACID
     Indication: Temporal lobe epilepsy
     Dosage: 1000 MILLIGRAM, ONCE A DAY (500 MILLIGRAM, 2X/DAY (BID))
     Route: 065
     Dates: start: 20220303
  6. PALIPERIDONE [Concomitant]
     Active Substance: PALIPERIDONE
     Indication: Antipsychotic therapy
     Route: 065
     Dates: start: 20220204, end: 20220330
  7. OLANZAPINE [Concomitant]
     Active Substance: OLANZAPINE
     Indication: Antipsychotic therapy
     Route: 065
     Dates: start: 20220203
  8. HALOPERIDOL [Concomitant]
     Active Substance: HALOPERIDOL
     Indication: Antipsychotic therapy
     Route: 065
     Dates: start: 20220307

REACTIONS (2)
  - Psychotic disorder [Recovered/Resolved]
  - Multiple-drug resistance [Unknown]
